FAERS Safety Report 4684549-2 (Version None)
Quarter: 2005Q2

REPORT INFORMATION
  Report Type: 
  Country: None (occurrence: None)
  Receive Date: 20050603
  Receipt Date: 20050518
  Transmission Date: 20051028
  Serious: Yes (Life-Threatening, Hospitalization)
  Sender: FDA-Public Use
  Company Number: FACT0500312

PATIENT
  Age: 46 Year
  Sex: Female

DRUGS (5)
  1. FACTIVE [Suspect]
     Indication: RESPIRATORY TRACT INFECTION BACTERIAL
     Dosage: 320 MG, QD, ORAL
     Route: 048
  2. VICODIN [Concomitant]
  3. SOMA [Concomitant]
  4. MULTIVITAMINS (ASCORBIC ACID, ERGOCALCIFEROL, FOLIC ACID, NICOTINAMIDE [Concomitant]
  5. ZINC [Concomitant]

REACTIONS (6)
  - BLOOD POTASSIUM DECREASED [None]
  - CYANOSIS [None]
  - ELECTROCARDIOGRAM PR PROLONGATION [None]
  - FATIGUE [None]
  - LOSS OF CONSCIOUSNESS [None]
  - RESPIRATORY ARREST [None]
